FAERS Safety Report 15384536 (Version 1)
Quarter: 2018Q3

REPORT INFORMATION
  Report Type: Other
  Country: DE (occurrence: DE)
  Receive Date: 20180914
  Receipt Date: 20180914
  Transmission Date: 20181010
  Serious: Yes (Other)
  Sender: FDA-Public Use
  Company Number: DE-MACLEODS PHARMACEUTICALS US LTD-MAC2018016544

PATIENT

DRUGS (1)
  1. VALSARTAN. [Suspect]
     Active Substance: VALSARTAN
     Indication: PRODUCT USED FOR UNKNOWN INDICATION
     Dosage: UNK UNK, QD, DAILY INTAKE UNTIL GENERAL PRACTITIONER CHANGED MEDICATION, FILM?COATED TABLET
     Route: 048
     Dates: start: 2014

REACTIONS (3)
  - Metastasis [Unknown]
  - Skin cancer [Unknown]
  - Product impurity [Unknown]

NARRATIVE: CASE EVENT DATE: 2016
